FAERS Safety Report 19081967 (Version 1)
Quarter: 2021Q1

REPORT INFORMATION
  Report Type: Spontaneous
  Country: US (occurrence: US)
  Receive Date: 20210331
  Receipt Date: 20210331
  Transmission Date: 20210420
  Serious: Yes (Hospitalization)
  Sender: FDA-Public Use
  Company Number: None

PATIENT
  Age: 38 Year
  Sex: Female
  Weight: 42.75 kg

DRUGS (7)
  1. LIALDA [Concomitant]
     Active Substance: MESALAMINE
  2. ETHINYL ESTRADIOL 0.02 MG / NORETHINDRONE ACETATE [Concomitant]
  3. VUMERITY [Suspect]
     Active Substance: DIROXIMEL FUMARATE
     Indication: MULTIPLE SCLEROSIS
     Dosage: ?          QUANTITY:2 CAPSULE(S);?
     Route: 048
     Dates: start: 20210104, end: 20210322
  4. ADDERALL [Concomitant]
     Active Substance: AMPHETAMINE ASPARTATE\AMPHETAMINE SULFATE\DEXTROAMPHETAMINE SACCHARATE\DEXTROAMPHETAMINE SULFATE
  5. LEVOXYL [Concomitant]
     Active Substance: LEVOTHYROXINE SODIUM
  6. PROZAC [Concomitant]
     Active Substance: FLUOXETINE HYDROCHLORIDE
  7. GARDEN OF LIFE MULTI VITAMINS FISH OIL [Concomitant]

REACTIONS (2)
  - Colonoscopy abnormal [None]
  - Colitis ulcerative [None]

NARRATIVE: CASE EVENT DATE: 20210307
